FAERS Safety Report 5712033-3 (Version None)
Quarter: 2008Q2

REPORT INFORMATION
  Report Type: 
  Country: None (occurrence: None)
  Receive Date: 20080421
  Receipt Date: 20080421
  Transmission Date: 20081010
  Serious: No
  Sender: FDA-Public Use
  Company Number: None

PATIENT
  Age: 31 Year

DRUGS (2)
  1. PROPYLTHIOURACIL [Suspect]
  2. PURINETHOL [Suspect]

REACTIONS (6)
  - ABORTION SPONTANEOUS [None]
  - CARDIO-RESPIRATORY ARREST [None]
  - DRUG DISPENSING ERROR [None]
  - DRUG EXPOSURE DURING PREGNANCY [None]
  - MEDICATION ERROR [None]
  - WRONG DRUG ADMINISTERED [None]
